FAERS Safety Report 5719860-7 (Version None)
Quarter: 2008Q2

REPORT INFORMATION
  Report Type: 
  Country: None (occurrence: None)
  Receive Date: 20080428
  Receipt Date: 20080421
  Transmission Date: 20081010
  Serious: Yes (Hospitalization)
  Sender: FDA-Public Use
  Company Number: JP-MERCK-0804USA05144

PATIENT
  Age: 75 Year
  Sex: Female

DRUGS (4)
  1. ZETIA [Suspect]
     Indication: HYPERLIPIDAEMIA
     Route: 048
     Dates: start: 20070706, end: 20080303
  2. PRAVASTATIN SODIUM [Concomitant]
     Route: 048
     Dates: start: 20070706, end: 20080303
  3. MANIDIPINE HYDROCHLORIDE [Concomitant]
     Route: 048
     Dates: start: 20070706, end: 20080303
  4. PROPRANOLOL HYDROCHLORIDE [Concomitant]
     Route: 048
     Dates: end: 20080303

REACTIONS (4)
  - ALANINE AMINOTRANSFERASE INCREASED [None]
  - ASPARTATE AMINOTRANSFERASE INCREASED [None]
  - GAMMA-GLUTAMYLTRANSFERASE INCREASED [None]
  - HEPATIC FUNCTION ABNORMAL [None]
